FAERS Safety Report 5737272-7 (Version None)
Quarter: 2008Q2

REPORT INFORMATION
  Report Type: 
  Country: None (occurrence: None)
  Receive Date: 20080514
  Receipt Date: 20080505
  Transmission Date: 20081010
  Serious: Yes (Death, Hospitalization)
  Sender: FDA-Public Use
  Company Number: US-AVENTIS-200811829US

PATIENT
  Sex: Male
  Weight: 74.84 kg

DRUGS (3)
  1. LOVENOX [Suspect]
     Route: 051
     Dates: start: 20080313
  2. INSULIN [Concomitant]
     Dosage: DOSE: UNK
  3. COUMADIN [Concomitant]
     Dosage: DOSE: UNK

REACTIONS (8)
  - CARDIAC ARREST [None]
  - DEATH [None]
  - DIZZINESS [None]
  - HOSPITALISATION [None]
  - MALAISE [None]
  - OEDEMA PERIPHERAL [None]
  - PAIN IN EXTREMITY [None]
  - STOMACH DISCOMFORT [None]
